FAERS Safety Report 11243845 (Version 2)
Quarter: 2015Q3

REPORT INFORMATION
  Report Type: Spontaneous
  Country: US (occurrence: US)
  Receive Date: 20150707
  Receipt Date: 20150715
  Transmission Date: 20151125
  Serious: Yes (Death, Life-Threatening, Hospitalization)
  Sender: FDA-Public Use
  Company Number: US-LPDUSPRD-20150507

PATIENT
  Age: 40 Year
  Sex: Male
  Weight: 102 kg

DRUGS (9)
  1. SENSIPAR [Concomitant]
     Active Substance: CINACALCET HYDROCHLORIDE
     Route: 065
  2. TOPROL XL [Concomitant]
     Active Substance: METOPROLOL SUCCINATE
     Route: 065
  3. EPOEITIN ALPHA [Concomitant]
     Route: 065
  4. 180NRE OPTIFLUX DIALYZER [Suspect]
     Active Substance: DEVICE
     Route: 010
  5. CLONIDINE. [Concomitant]
     Active Substance: CLONIDINE
     Route: 065
  6. PHOSLO [Concomitant]
     Active Substance: CALCIUM ACETATE
     Route: 065
  7. HYDRALAZINE [Concomitant]
     Active Substance: HYDRALAZINE HYDROCHLORIDE
     Route: 065
  8. VENOFER [Suspect]
     Active Substance: IRON SUCROSE
     Dosage: 100 MG/IVP/Q TREATMENT 3X WEEK
     Route: 040
     Dates: start: 20150317
  9. FRESENIUS 2008K [Suspect]
     Active Substance: DEVICE
     Route: 010

REACTIONS (6)
  - Cardiac arrest [Fatal]
  - Headache [Unknown]
  - Ventricular fibrillation [Fatal]
  - Chest pain [Unknown]
  - Hypertensive crisis [Unknown]
  - Bradycardia [Fatal]

NARRATIVE: CASE EVENT DATE: 20150317
